FAERS Safety Report 6639942-5 (Version None)
Quarter: 2010Q1

REPORT INFORMATION
  Report Type: 
  Country: None (occurrence: None)
  Receive Date: 20100302
  Receipt Date: 20091208
  Transmission Date: 20100710
  Serious: No
  Sender: FDA-Public Use
  Company Number: 2009263430

PATIENT
  Age: 66 Year
  Sex: Male
  Weight: 74.8 kg

DRUGS (10)
  1. TOVIAZ [Suspect]
     Indication: BLADDER SPASM
     Dosage: 8 MG, 1X/DAY, ORAL
     Route: 048
     Dates: start: 20090401
  2. TOVIAZ [Suspect]
     Indication: POLLAKIURIA
     Dosage: 8 MG, 1X/DAY, ORAL
     Route: 048
     Dates: start: 20090401
  3. NEXIUM [Concomitant]
  4. RANITIDINE (RANTIDINE) [Concomitant]
  5. LORATADINE [Concomitant]
  6. ASCORBIC ACID [Concomitant]
  7. CITRACAL (CALCIUM CITRATE) [Concomitant]
  8. MAGNESIUM (MAGNESIUM) [Concomitant]
  9. VITAMIN D [Concomitant]
  10. ASPIRIN [Concomitant]

REACTIONS (8)
  - BALANCE DISORDER [None]
  - DIZZINESS [None]
  - DRY MOUTH [None]
  - GASTROINTESTINAL MOTILITY DISORDER [None]
  - HEADACHE [None]
  - HYPOAESTHESIA FACIAL [None]
  - MUSCLE SPASMS [None]
  - SOMNOLENCE [None]
